FAERS Safety Report 17482825 (Version 1)
Quarter: 2020Q1

REPORT INFORMATION
  Report Type: Spontaneous
  Country: IT (occurrence: IT)
  Receive Date: 20200302
  Receipt Date: 20200302
  Transmission Date: 20200409
  Serious: Yes (Other)
  Sender: FDA-Public Use
  Company Number: IT-PFIZER INC-2020092028

PATIENT
  Age: 70 Year
  Sex: Female

DRUGS (12)
  1. ARTROTEC [DICLOFENAC SODIUM] [Concomitant]
     Dosage: UNK
  2. ALENDRONATE SODIUM. [Suspect]
     Active Substance: ALENDRONATE SODIUM
     Indication: OSTEOPOROSIS POSTMENOPAUSAL
     Dosage: 70 MILLIGRAM, 1/WEEK
     Route: 048
  3. ATORVASTATIN [Concomitant]
     Active Substance: ATORVASTATIN
     Dosage: UNK
  4. EUTIROX [Concomitant]
     Active Substance: LEVOTHYROXINE SODIUM
     Dosage: UNK
  5. EXEMESTANE. [Concomitant]
     Active Substance: EXEMESTANE
     Dosage: UNK
  6. PREDNISOLONE. [Concomitant]
     Active Substance: PREDNISOLONE
  7. DIBASE [Concomitant]
     Active Substance: CHOLECALCIFEROL
     Dosage: UNK
  8. ESOMEPRAZOLE. [Concomitant]
     Active Substance: ESOMEPRAZOLE MAGNESIUM
  9. TRIATEC [CODEINE PHOSPHATE;PARACETAMOL] [Concomitant]
     Active Substance: ACETAMINOPHEN\CODEINE PHOSPHATE
     Dosage: UNK
  10. HALCION [Concomitant]
     Active Substance: TRIAZOLAM
     Dosage: UNK
  11. METRONIDAZOLE. [Concomitant]
     Active Substance: METRONIDAZOLE
  12. PANTOPRAZOLE [Suspect]
     Active Substance: PANTOPRAZOLE
     Dosage: UNK
     Route: 065

REACTIONS (1)
  - Osteonecrosis of jaw [Recovered/Resolved with Sequelae]
